FAERS Safety Report 5130086-0 (Version None)
Quarter: 2006Q4

REPORT INFORMATION
  Report Type: 
  Country: None (occurrence: None)
  Receive Date: 20061012
  Receipt Date: 20060926
  Transmission Date: 20070319
  Serious: Yes (Hospitalization)
  Sender: FDA-Public Use
  Company Number: 6026062

PATIENT
  Age: 12 Year
  Sex: Female

DRUGS (1)
  1. THYROZOL (THIAMAZOLE) [Suspect]
     Indication: HYPERTHYROIDISM
     Dosage: 0,800 MG/KG (0,8 MG/KG, 1 IN 1 D)

REACTIONS (9)
  - ANTI-THYROID ANTIBODY POSITIVE [None]
  - DIFFUSE MESANGIAL SCLEROSIS [None]
  - HAEMATURIA [None]
  - HYPOTHYROIDISM [None]
  - LEUKOPENIA [None]
  - PROTEINURIA [None]
  - RAYNAUD'S PHENOMENON [None]
  - TOXIC EPIDERMAL NECROLYSIS [None]
  - TRANSAMINASES INCREASED [None]
